FAERS Safety Report 9737017 (Version 1)
Quarter: 2013Q4

REPORT INFORMATION
  Report Type: Spontaneous
  Country: US (occurrence: US)
  Receive Date: 20131206
  Receipt Date: 20131206
  Transmission Date: 20140711
  Serious: No
  Sender: FDA-Public Use
  Company Number: US-GILEAD-2009-0024146

PATIENT
  Sex: Female

DRUGS (8)
  1. LETAIRIS [Suspect]
     Indication: PULMONARY ARTERIAL HYPERTENSION
     Route: 048
     Dates: start: 20080312
  2. REMODULIN [Concomitant]
  3. COUMADIN [Concomitant]
  4. LAMICTAL [Concomitant]
  5. LITHIUM CARBONATE [Concomitant]
  6. ACIPHEX [Concomitant]
  7. DOXYCYCLINE [Concomitant]
  8. SEROQUEL [Concomitant]

REACTIONS (1)
  - Pyrexia [Not Recovered/Not Resolved]
